FAERS Safety Report 5292072-X (Version None)
Quarter: 2007Q2

REPORT INFORMATION
  Report Type: 
  Country: None (occurrence: None)
  Receive Date: 20070406
  Receipt Date: 20070406
  Transmission Date: 20071010
  Serious: Yes (Hospitalization)
  Sender: FDA-Public Use
  Company Number: None

PATIENT
  Sex: Female
  Weight: 56.1 kg

DRUGS (4)
  1. CARBOPLATIN [Suspect]
     Dosage: 650 MG
  2. TAXOL [Suspect]
     Dosage: 309 MG
  3. ASPIRIN [Concomitant]
  4. SIMVASTATIN [Concomitant]

REACTIONS (6)
  - CORYNEBACTERIUM INFECTION [None]
  - FEBRILE NEUTROPENIA [None]
  - HAEMATURIA [None]
  - HAEMOGLOBIN DECREASED [None]
  - PLATELET COUNT DECREASED [None]
  - URINARY TRACT INFECTION [None]
